FAERS Safety Report 12241534 (Version 6)
Quarter: 2020Q3

REPORT INFORMATION
  Report Type: Spontaneous
  Country: US (occurrence: US)
  Receive Date: 20160406
  Receipt Date: 20200921
  Transmission Date: 20201102
  Serious: No
  Sender: FDA-Public Use
  Company Number: US-PFIZER INC-2016191977

PATIENT
  Age: 76 Year
  Sex: Female
  Weight: 58.97 kg

DRUGS (2)
  1. PREMARIN [Suspect]
     Active Substance: ESTROGENS, CONJUGATED
     Indication: HORMONE REPLACEMENT THERAPY
     Dosage: 0.45 MG, THREE TIMES A WEEK
     Dates: start: 1984
  2. PREMARIN [Suspect]
     Active Substance: ESTROGENS, CONJUGATED
     Dosage: UNK, ALTERNATE DAY (EVERY OTHER DAY)

REACTIONS (5)
  - Off label use [Unknown]
  - Micturition urgency [Unknown]
  - Intentional product misuse [Unknown]
  - Vulvovaginal dryness [Unknown]
  - Sinusitis [Unknown]

NARRATIVE: CASE EVENT DATE: 20160329
